FAERS Safety Report 8623521-4 (Version None)
Quarter: 2012Q3

REPORT INFORMATION
  Report Type: 
  Country: None (occurrence: None)
  Receive Date: 20120824
  Receipt Date: 20120824
  Transmission Date: 20120928
  Serious: Yes (Hospitalization)
  Sender: FDA-Public Use
  Company Number: None

PATIENT
  Age: 34 Year
  Sex: Female
  Weight: 68.0396 kg

DRUGS (1)
  1. LEXAPRO [Suspect]
     Dosage: 10 MG ORAL
     Route: 048
     Dates: start: 20120517, end: 20120518

REACTIONS (13)
  - HOT FLUSH [None]
  - VISUAL IMPAIRMENT [None]
  - SYNCOPE [None]
  - SEROTONIN SYNDROME [None]
  - COORDINATION ABNORMAL [None]
  - INCOHERENT [None]
  - DISTURBANCE IN ATTENTION [None]
  - DIZZINESS [None]
  - NAUSEA [None]
  - DYSTONIA [None]
  - HEADACHE [None]
  - ANXIETY [None]
  - HEART RATE INCREASED [None]
